FAERS Safety Report 4642007-5 (Version None)
Quarter: 2005Q2

REPORT INFORMATION
  Report Type: 
  Country: None (occurrence: None)
  Receive Date: 20050421
  Receipt Date: 20050330
  Transmission Date: 20051028
  Serious: Yes (Other)
  Sender: FDA-Public Use
  Company Number: US_0504115137

PATIENT
  Age: 73 Year
  Sex: Female

DRUGS (2)
  1. EVISTA [Suspect]
  2. BISPHOSPHONATE [Concomitant]

REACTIONS (2)
  - PUBIC RAMI FRACTURE [None]
  - SPINAL COMPRESSION FRACTURE [None]
